FAERS Safety Report 9226855 (Version 1)
Quarter: 2013Q2

REPORT INFORMATION
  Report Type: Spontaneous
  Country: US (occurrence: None)
  Receive Date: 20130410
  Receipt Date: 20130410
  Transmission Date: 20140414
  Serious: Yes (Hospitalization)
  Sender: FDA-Public Use
  Company Number: None

PATIENT
  Age: 86 Year
  Sex: Male
  Weight: 72.8 kg

DRUGS (12)
  1. XARELTO [Suspect]
     Indication: ATRIAL FIBRILLATION
     Dosage: CHRONIC
     Route: 048
  2. SYNTHROID [Concomitant]
  3. LIPITOR [Concomitant]
  4. TOPROL XL [Concomitant]
  5. METFORMIN [Concomitant]
  6. SPIRIVA [Concomitant]
  7. GABAPENTIN [Concomitant]
  8. ADVAIR [Concomitant]
  9. BUMEX [Concomitant]
  10. PRILOSEC [Concomitant]
  11. ASPIRIN [Concomitant]
  12. CELEBREX [Concomitant]

REACTIONS (4)
  - Lower gastrointestinal haemorrhage [None]
  - International normalised ratio increased [None]
  - Renal failure [None]
  - Pneumonia [None]
